FAERS Safety Report 8362123-4 (Version None)
Quarter: 2012Q2

REPORT INFORMATION
  Report Type: 
  Country: None (occurrence: None)
  Receive Date: 20120515
  Receipt Date: 20120430
  Transmission Date: 20120825
  Serious: Yes (Other)
  Sender: FDA-Public Use
  Company Number: CHPA2012US010350

PATIENT
  Age: 41 Year
  Sex: Male

DRUGS (2)
  1. IBUPROFEN [Suspect]
     Dosage: 24-26 PILLS, PER DAY
     Route: 048
     Dates: start: 20050101, end: 20101101
  2. FLEXERIL [Concomitant]

REACTIONS (15)
  - TENDON INJURY [None]
  - OVERDOSE [None]
  - LOSS OF CONSCIOUSNESS [None]
  - CEREBRAL ARTERY OCCLUSION [None]
  - DIZZINESS [None]
  - APHONIA [None]
  - DYSPNOEA [None]
  - HEPATIC STEATOSIS [None]
  - INTERVERTEBRAL DISC PROTRUSION [None]
  - DYSPHAGIA [None]
  - TREMOR [None]
  - HYPOAESTHESIA [None]
  - ROAD TRAFFIC ACCIDENT [None]
  - SPEECH DISORDER [None]
  - BLOOD PRESSURE INCREASED [None]
